FAERS Safety Report 5049587-9 (Version None)
Quarter: 2006Q3

REPORT INFORMATION
  Report Type: 
  Country: None (occurrence: None)
  Receive Date: 20060712
  Receipt Date: 20060705
  Transmission Date: 20061208
  Serious: Yes (Death, Other)
  Sender: FDA-Public Use
  Company Number: BR-BRISTOL-MYERS SQUIBB COMPANY-13432570

PATIENT

DRUGS (3)
  1. CISPLATIN [Suspect]
     Indication: NON-SMALL CELL LUNG CANCER
  2. CARBOPLATIN [Suspect]
     Indication: NON-SMALL CELL LUNG CANCER
  3. VINORELBINE [Suspect]
     Indication: NON-SMALL CELL LUNG CANCER

REACTIONS (11)
  - ANAEMIA [None]
  - DEATH [None]
  - FATIGUE [None]
  - GRANULOCYTOPENIA [None]
  - INFECTION [None]
  - LEUKOPENIA [None]
  - NAUSEA [None]
  - NEUROTOXICITY [None]
  - THROMBOCYTOPENIA [None]
  - UROGENITAL DISORDER [None]
  - VOMITING [None]
